FAERS Safety Report 19847325 (Version 3)
Quarter: 2021Q4

REPORT INFORMATION
  Report Type: Report from Study
  Country: US (occurrence: None)
  Receive Date: 20210917
  Receipt Date: 20211229
  Transmission Date: 20220303
  Serious: Yes (Hospitalization)
  Sender: FDA-Public Use
  Company Number: US-EISAI MEDICAL RESEARCH-EC-2021-098124

PATIENT
  Age: 79 Year
  Sex: Female
  Weight: 67.58 kg

DRUGS (21)
  1. LENVIMA [Suspect]
     Active Substance: LENVATINIB
     Indication: Endometrial cancer
     Route: 048
     Dates: start: 20210812, end: 202109
  2. LENVIMA [Suspect]
     Active Substance: LENVATINIB
     Route: 048
     Dates: start: 20210911
  3. ACETAMINOPHEN\CODEINE PHOSPHATE [Concomitant]
     Active Substance: ACETAMINOPHEN\CODEINE PHOSPHATE
  4. XANAX [Concomitant]
     Active Substance: ALPRAZOLAM
  5. CREON [Concomitant]
     Active Substance: PANCRELIPASE AMYLASE\PANCRELIPASE LIPASE\PANCRELIPASE PROTEASE
  6. EZETIMIBE [Concomitant]
     Active Substance: EZETIMIBE
  7. GABAPENTIN [Concomitant]
     Active Substance: GABAPENTIN
  8. JANUVIA [Concomitant]
     Active Substance: SITAGLIPTIN PHOSPHATE
  9. LEVOTHYROXINE [Concomitant]
     Active Substance: LEVOTHYROXINE
     Dosage: DOSE INCREASED A LITTLE
  10. METOPROLOL [Concomitant]
     Active Substance: METOPROLOL
  11. NEXIUM [Concomitant]
     Active Substance: ESOMEPRAZOLE MAGNESIUM
  12. HYDROCHLOROTHIAZIDE\OLMESARTAN MEDOXOMIL [Concomitant]
     Active Substance: HYDROCHLOROTHIAZIDE\OLMESARTAN MEDOXOMIL
  13. RIZATRIPTAN [Concomitant]
     Active Substance: RIZATRIPTAN
  14. TERAZOSIN [Concomitant]
     Active Substance: TERAZOSIN HYDROCHLORIDE
  15. TROSPIUM CHLORIDE [Concomitant]
     Active Substance: TROSPIUM CHLORIDE
  16. OMEPRAZOLE [Concomitant]
     Active Substance: OMEPRAZOLE
  17. ASPIRIN [Concomitant]
     Active Substance: ASPIRIN
  18. CLOPIDOGREL [Concomitant]
     Active Substance: CLOPIDOGREL BISULFATE
  19. ATORVASTATIN [Concomitant]
     Active Substance: ATORVASTATIN
  20. CALCIUM [Concomitant]
     Active Substance: CALCIUM
  21. KEYTRUDA [Concomitant]
     Active Substance: PEMBROLIZUMAB

REACTIONS (7)
  - Transient ischaemic attack [Unknown]
  - Blood pressure increased [Recovered/Resolved]
  - Heart rate increased [Unknown]
  - Blood pressure fluctuation [Recovering/Resolving]
  - Faeces soft [Unknown]
  - Fatigue [Not Recovered/Not Resolved]
  - Gingival pain [Unknown]

NARRATIVE: CASE EVENT DATE: 20210101
